FAERS Safety Report 5020256-4 (Version None)
Quarter: 2006Q2

REPORT INFORMATION
  Report Type: 
  Country: None (occurrence: None)
  Receive Date: 20060602
  Receipt Date: 20060511
  Transmission Date: 20061013
  Serious: Yes (Other)
  Sender: FDA-Public Use
  Company Number: NZ200605004631

PATIENT
  Age: 39 Year
  Sex: Male

DRUGS (9)
  1. ZYPREXA [Suspect]
     Indication: SCHIZOPHRENIA, PARANOID TYPE
     Dosage: 10 + 20 MG, EACH EVENING, ORAL
     Route: 048
     Dates: start: 20060424, end: 20060424
  2. ZYPREXA [Suspect]
     Indication: SCHIZOPHRENIA, PARANOID TYPE
     Dosage: 10 + 20 MG, EACH EVENING, ORAL
     Route: 048
     Dates: start: 20060425
  3. CLOZAPINE [Concomitant]
  4. BENZTROPINE MESYLATE (VENZATROPINE MESILATE) [Concomitant]
  5. RITUXIMAB (RITUXIMAB) [Concomitant]
  6. CYCLOPHOSPHAMIDE [Concomitant]
  7. ADRIAMYCIN PFS [Concomitant]
  8. VINCRISTINE [Concomitant]
  9. PREDNISONE TAB [Concomitant]

REACTIONS (2)
  - NEUTROPENIA [None]
  - WHITE BLOOD CELL COUNT DECREASED [None]
